FAERS Safety Report 7299682-9 (Version None)
Quarter: 2011Q1

REPORT INFORMATION
  Report Type: 
  Country: None (occurrence: None)
  Receive Date: 20110217
  Receipt Date: 20110208
  Transmission Date: 20110831
  Serious: Yes (Other)
  Sender: FDA-Public Use
  Company Number: DE-ASTRAZENECA-2011SE03764

PATIENT
  Sex: Female

DRUGS (2)
  1. SEROQUEL [Suspect]
     Indication: AGGRESSION
     Route: 048
  2. SEROQUEL [Suspect]
     Indication: RESTLESSNESS
     Route: 048

REACTIONS (2)
  - HYPOTHERMIA [None]
  - DEPRESSED LEVEL OF CONSCIOUSNESS [None]
